FAERS Safety Report 11509566 (Version 1)
Quarter: 2015Q3

REPORT INFORMATION
  Report Type: Spontaneous
  Country: US (occurrence: US)
  Receive Date: 20150915
  Receipt Date: 20150915
  Transmission Date: 20151125
  Serious: No
  Sender: FDA-Public Use
  Company Number: US-JNJFOC-20150614991

PATIENT
  Sex: Female

DRUGS (2)
  1. TYLENOL SORE THROAT [Suspect]
     Active Substance: ACETAMINOPHEN
     Indication: OROPHARYNGEAL PAIN
     Dosage: 2 TABLESPOONS.EVERY 6 HOURS.
     Route: 048
  2. TYLENOL SORE THROAT [Suspect]
     Active Substance: ACETAMINOPHEN
     Route: 048

REACTIONS (1)
  - Exposure during pregnancy [Unknown]
